FAERS Safety Report 20090288 (Version 1)
Quarter: 2021Q4

REPORT INFORMATION
  Report Type: Spontaneous
  Country: US (occurrence: None)
  Receive Date: 20211118
  Receipt Date: 20211118
  Transmission Date: 20220303
  Serious: Yes (Hospitalization)
  Sender: FDA-Public Use
  Company Number: None

PATIENT
  Age: 81 Year
  Sex: Female
  Weight: 96.1 kg

DRUGS (22)
  1. CASIRIVIMAB\IMDEVIMAB [Suspect]
     Active Substance: CASIRIVIMAB\IMDEVIMAB
     Indication: COVID-19 prophylaxis
     Dosage: OTHER FREQUENCY : ONCE;?
     Route: 058
  2. ACETAMINOPHEN [Concomitant]
     Active Substance: ACETAMINOPHEN
  3. albuterol-ipratropium inhalation [Concomitant]
  4. amiodarone 200mg tab [Concomitant]
  5. apixiban 2.5 mg tab [Concomitant]
  6. ATORVASTATIN [Concomitant]
     Active Substance: ATORVASTATIN
  7. bumetanide 2mg tab [Concomitant]
  8. calcium carbonate 500mg [Concomitant]
  9. carvedilol 25 mg tab [Concomitant]
  10. diltiazem 240mg SR Tab [Concomitant]
  11. docusate 100mg cap [Concomitant]
  12. ergocalciferol 1.25mg po cap [Concomitant]
  13. ferrous sulfate 325 mg tab [Concomitant]
  14. fluticasone-salmeterol 250-50 inhaler [Concomitant]
  15. hydralazine 100mg po tab [Concomitant]
  16. INSULIN ASPART [Concomitant]
     Active Substance: INSULIN ASPART
  17. INSULIN GLARGINE [Concomitant]
     Active Substance: INSULIN GLARGINE
  18. ISOSORBIDE MONONITRATE [Concomitant]
     Active Substance: ISOSORBIDE MONONITRATE
  19. LACTULOSE [Concomitant]
     Active Substance: LACTULOSE
  20. LOSARTAN [Concomitant]
     Active Substance: LOSARTAN
  21. magnesium oxide tabs [Concomitant]
  22. memantine 10mg tab [Concomitant]

REACTIONS (4)
  - Transaminases increased [None]
  - Blood urea increased [None]
  - Blood creatinine increased [None]
  - Hepatic enzyme increased [None]

NARRATIVE: CASE EVENT DATE: 20211109
